FAERS Safety Report 14702533 (Version 2)
Quarter: 2018Q4

REPORT INFORMATION
  Report Type: Spontaneous
  Country: FR (occurrence: FR)
  Receive Date: 20180401
  Receipt Date: 20181024
  Transmission Date: 20190204
  Serious: Yes (Hospitalization, Other)
  Sender: FDA-Public Use
  Company Number: FR-MERCK KGAA-2044849

PATIENT
  Age: 55 Year
  Sex: Female

DRUGS (1)
  1. EUTHYROX [Suspect]
     Active Substance: LEVOTHYROXINE SODIUM
     Indication: PRODUCT USED FOR UNKNOWN INDICATION

REACTIONS (20)
  - Discomfort [None]
  - Depressed mood [None]
  - Personality change [None]
  - Agitation [None]
  - Arthralgia [None]
  - Anxiety [None]
  - Irritability [None]
  - Mobility decreased [Not Recovered/Not Resolved]
  - Psychiatric symptom [None]
  - Pain in extremity [None]
  - Insomnia [None]
  - Phlebitis [None]
  - Weight increased [None]
  - Fatigue [None]
  - Arthropathy [None]
  - Social avoidant behaviour [None]
  - Loss of personal independence in daily activities [None]
  - Blood thyroid stimulating hormone decreased [None]
  - Pulmonary embolism [None]
  - Somnolence [None]

NARRATIVE: CASE EVENT DATE: 201703
